FAERS Safety Report 23050972 (Version 1)
Quarter: 2023Q4

REPORT INFORMATION
  Report Type: Spontaneous
  Country: US (occurrence: None)
  Receive Date: 20231009
  Receipt Date: 20231009
  Transmission Date: 20240109
  Serious: Yes (Hospitalization)
  Sender: FDA-Public Use
  Company Number: None

PATIENT
  Age: 38 Year
  Sex: Female

DRUGS (2)
  1. BIKTARVY [Suspect]
     Active Substance: BICTEGRAVIR SODIUM\EMTRICITABINE\TENOFOVIR ALAFENAMIDE FUMARATE
     Dosage: FREQUENCY : DAILY;?
     Route: 048
  2. DAPSONE [Suspect]
     Active Substance: DAPSONE
     Dosage: FREQUENCY : DAILY;?
     Route: 048

REACTIONS (1)
  - Colon cancer stage III [None]

NARRATIVE: CASE EVENT DATE: 20231009
